FAERS Safety Report 13185908 (Version 1)
Quarter: 2017Q1

REPORT INFORMATION
  Report Type: Spontaneous
  Country: GB (occurrence: GB)
  Receive Date: 20170203
  Receipt Date: 20170203
  Transmission Date: 20170428
  Serious: Yes (Other)
  Sender: FDA-Public Use
  Company Number: GB-IMPAX LABORATORIES, INC-2017-IPXL-00179

PATIENT
  Age: 63 Year
  Sex: Male

DRUGS (1)
  1. MINOCYCLINE HYDROCHLORIDE. [Suspect]
     Active Substance: MINOCYCLINE HYDROCHLORIDE
     Indication: BRONCHOPULMONARY ASPERGILLOSIS
     Dosage: UNK
     Route: 065

REACTIONS (4)
  - Aortic aneurysm [Recovered/Resolved]
  - Skin hyperpigmentation [Unknown]
  - Aortic valve incompetence [Unknown]
  - Pigmentation disorder [Unknown]
